FAERS Safety Report 25195613 (Version 4)
Quarter: 2025Q3

REPORT INFORMATION
  Report Type: Spontaneous
  Country: US (occurrence: US)
  Receive Date: 20250415
  Receipt Date: 20250728
  Transmission Date: 20251021
  Serious: No
  Sender: SANOFI AVENTIS
  Company Number: US-SA-2025SA104415

PATIENT
  Age: 67 Year
  Sex: Female

DRUGS (1)
  1. KEVZARA [Suspect]
     Active Substance: SARILUMAB
     Indication: Behcet^s syndrome
     Dosage: 150 MG, QOW
     Route: 058
     Dates: start: 202503

REACTIONS (7)
  - Injection site bruising [Unknown]
  - Injection site pain [Unknown]
  - Hepatic enzyme increased [Unknown]
  - Muscle spasms [Unknown]
  - Hypoaesthesia [Unknown]
  - Condition aggravated [Unknown]
  - Product use in unapproved indication [Unknown]

NARRATIVE: CASE EVENT DATE: 20250101
